FAERS Safety Report 9614579 (Version 1)
Quarter: 2013Q4

REPORT INFORMATION
  Report Type: Spontaneous
  Country: US (occurrence: US)
  Receive Date: 20131011
  Receipt Date: 20131011
  Transmission Date: 20140711
  Serious: Yes (Other)
  Sender: FDA-Public Use
  Company Number: PHHY2013US112079

PATIENT
  Age: 66 Year
  Sex: Male

DRUGS (4)
  1. OCTREOTIDE [Suspect]
     Indication: GASTROINTESTINAL HAEMORRHAGE
     Route: 058
  2. IRON SUPPLEMENTS [Suspect]
  3. ACETYLSALICYLIC ACID [Concomitant]
     Dates: start: 2010
  4. PLAVIX [Concomitant]
     Dates: start: 2010

REACTIONS (3)
  - Angina unstable [Unknown]
  - Atrial fibrillation [Unknown]
  - Gastrointestinal haemorrhage [Unknown]
